FAERS Safety Report 12423100 (Version 1)
Quarter: 2016Q2

REPORT INFORMATION
  Report Type: Spontaneous
  Country: US (occurrence: None)
  Receive Date: 20160531
  Receipt Date: 20160531
  Transmission Date: 20160815
  Serious: Yes (Life-Threatening, Hospitalization, Disabling)
  Sender: FDA-Public Use
  Company Number: None

PATIENT
  Age: 61 Year
  Sex: Male
  Weight: 72.58 kg

DRUGS (17)
  1. RECLAST [Suspect]
     Active Substance: ZOLEDRONIC ACID
     Indication: OSTEONECROSIS OF JAW
     Dosage: ONCE A YEAR IV INTO A VEIN
     Route: 042
     Dates: start: 20140528
  2. ALBUTEROL. [Concomitant]
     Active Substance: ALBUTEROL
  3. FORTEO [Concomitant]
     Active Substance: TERIPARATIDE
  4. ORENCIA [Concomitant]
     Active Substance: ABATACEPT
  5. ZOLOFT [Concomitant]
     Active Substance: SERTRALINE HYDROCHLORIDE
  6. DILAUDID [Concomitant]
     Active Substance: HYDROMORPHONE HYDROCHLORIDE
  7. SINGULAIR [Concomitant]
     Active Substance: MONTELUKAST SODIUM
  8. DULERA [Concomitant]
     Active Substance: FORMOTEROL FUMARATE DIHYDRATE\MOMETASONE FUROATE
  9. ARAVA [Concomitant]
     Active Substance: LEFLUNOMIDE
  10. NORVASC [Concomitant]
     Active Substance: AMLODIPINE BESYLATE
  11. ROBAXIN [Concomitant]
     Active Substance: METHOCARBAMOL
  12. LISINOPRIL. [Concomitant]
     Active Substance: LISINOPRIL
  13. NEURONTIN [Concomitant]
     Active Substance: GABAPENTIN
  14. POTASSIUM [Concomitant]
     Active Substance: POTASSIUM
  15. MULTIVITAMIN [Concomitant]
     Active Substance: VITAMINS
  16. BENADRYL [Concomitant]
     Active Substance: DIPHENHYDRAMINE HYDROCHLORIDE
  17. VITAMIN D [Concomitant]
     Active Substance: CHOLECALCIFEROL

REACTIONS (4)
  - Emotional disorder [None]
  - Femur fracture [None]
  - Pain [None]
  - Osteonecrosis of jaw [None]

NARRATIVE: CASE EVENT DATE: 20150404
